FAERS Safety Report 8648216 (Version 3)
Quarter: 2013Q1

REPORT INFORMATION
  Report Type: Report from Study
  Country: JP (occurrence: JP)
  Receive Date: 20120703
  Receipt Date: 20130221
  Transmission Date: 20140127
  Serious: Yes (Hospitalization)
  Sender: FDA-Public Use
  Company Number: JP-ABBOTT-12P-087-0948952-00

PATIENT
  Age: 51 None
  Sex: Male
  Weight: 67 kg

DRUGS (13)
  1. HUMIRA 40 MG/ 0.8 ML PRE-FILLED SYRINGE [Suspect]
     Indication: RHEUMATOID ARTHRITIS
     Route: 058
     Dates: start: 20111102, end: 20120606
  2. HUMIRA 40 MG/ 0.8 ML PRE-FILLED SYRINGE [Suspect]
  3. RHEUMATREX [Suspect]
     Indication: RHEUMATOID ARTHRITIS
     Dosage: 6 MG/WEEK
     Route: 048
     Dates: start: 20110805, end: 20120617
  4. PREDONINE [Suspect]
     Indication: RHEUMATOID ARTHRITIS
     Route: 048
     Dates: start: 20110615
  5. PREDONINE [Suspect]
     Route: 048
     Dates: end: 20120124
  6. PREDONINE [Suspect]
     Route: 048
     Dates: start: 20120120, end: 20120320
  7. PREDONINE [Suspect]
     Dates: start: 20120321, end: 20120515
  8. PREDONINE [Suspect]
     Dates: start: 20120516
  9. FOLIC ACID [Concomitant]
     Indication: PROPHYLAXIS
     Dosage: 5 MG/WEEK
     Route: 048
     Dates: start: 20110805
  10. FOLIC ACID [Concomitant]
     Indication: ADVERSE DRUG REACTION
  11. LOXOPROFEN SODIUM HYDRATE [Concomitant]
     Indication: RHEUMATOID ARTHRITIS
     Route: 048
     Dates: end: 20111129
  12. OMEPRAZOLE [Concomitant]
     Indication: PRODUCT USED FOR UNKNOWN INDICATION
     Route: 048
  13. REBAMIPIDE [Concomitant]
     Indication: PRODUCT USED FOR UNKNOWN INDICATION
     Route: 048
     Dates: end: 20111129

REACTIONS (6)
  - Organising pneumonia [Not Recovered/Not Resolved]
  - Pneumonia bacterial [Not Recovered/Not Resolved]
  - Lung infiltration [Unknown]
  - Malaise [Unknown]
  - Cough [Unknown]
  - Arthralgia [Unknown]
